FAERS Safety Report 8935215 (Version 1)
Quarter: 2012Q4

REPORT INFORMATION
  Report Type: 
  Country: IT (occurrence: IT)
  Receive Date: 20121129
  Receipt Date: 20121129
  Transmission Date: 20130627
  Serious: Yes (Other)
  Sender: FDA-Public Use
  Company Number: PHHY2012IT108788

PATIENT
  Age: 10 Year
  Sex: Male
  Weight: 51 kg

DRUGS (8)
  1. METHOTREXATE [Suspect]
     Indication: ACUTE LYMPHOCYTIC LEUKAEMIA
     Dosage: 1450 mg, Cyclic dose
     Route: 042
     Dates: start: 20120614, end: 20120614
  2. VINCRISTINE [Suspect]
     Indication: ACUTE LYMPHOCYTIC LEUKAEMIA
     Dosage: 2 mg, UNK
     Route: 042
     Dates: start: 20120614
  3. DEXAMETHASONE SANDOZ [Suspect]
     Indication: ACUTE LYMPHOCYTIC LEUKAEMIA
     Dosage: 2 mg, UNK
     Route: 048
     Dates: start: 20120614, end: 20120619
  4. BACTRIM [Concomitant]
  5. LASIX [Concomitant]
  6. MYCOSTATIN [Concomitant]
  7. ZYLORIC [Concomitant]
  8. ERWINASE [Concomitant]

REACTIONS (1)
  - Hypertension [Recovering/Resolving]
